FAERS Safety Report 8922485 (Version 1)
Quarter: 2012Q4

REPORT INFORMATION
  Report Type: 
  Country: US (occurrence: US)
  Receive Date: 20121123
  Receipt Date: 20121123
  Transmission Date: 20130627
  Serious: No
  Sender: FDA-Public Use
  Company Number: US-PFIZER INC-2012292307

PATIENT
  Age: 67 Year
  Sex: Female
  Weight: 53.52 kg

DRUGS (3)
  1. LIPITOR [Suspect]
     Indication: HIGH CHOLESTEROL
     Dosage: 10 mg, daily
     Route: 048
     Dates: start: 20120801, end: 2012
  2. LIPITOR [Suspect]
     Dosage: 10 mg four times a week
     Route: 048
     Dates: start: 2012, end: 2012
  3. LIPITOR [Suspect]
     Dosage: half a tablet of 10 mg every other day
     Route: 048
     Dates: start: 2012, end: 20120913

REACTIONS (11)
  - Fatigue [Recovering/Resolving]
  - Anaemia [Recovering/Resolving]
  - Inflammation [Recovering/Resolving]
  - Back pain [Recovering/Resolving]
  - Local swelling [Recovering/Resolving]
  - Swelling [Recovering/Resolving]
  - Pain in extremity [Recovering/Resolving]
  - Myalgia [Recovering/Resolving]
  - Pyrexia [Recovered/Resolved]
  - Pain in jaw [Recovering/Resolving]
  - Activities of daily living impaired [Recovering/Resolving]
